FAERS Safety Report 10306023 (Version 2)
Quarter: 2014Q3

REPORT INFORMATION
  Report Type: Spontaneous
  Country: CA (occurrence: None)
  Receive Date: 20140711
  Receipt Date: 20140724
  Transmission Date: 20150326
  Serious: Yes (Other)
  Sender: FDA-Public Use
  Company Number: 2014-002018

PATIENT
  Age: 32 Year
  Sex: Female

DRUGS (6)
  1. PREDNISONE. [Suspect]
     Active Substance: PREDNISONE
  2. MELOXICAM. [Suspect]
     Active Substance: MELOXICAM
  3. ORENCIA [Suspect]
     Active Substance: ABATACEPT
     Route: 042
  4. ENBREL [Concomitant]
     Active Substance: ETANERCEPT
  5. OXYCODONE [Concomitant]
     Active Substance: OXYCODONE
  6. ACTONEL [Suspect]
     Active Substance: RISEDRONATE SODIUM
     Route: 048

REACTIONS (2)
  - Gastric ulcer perforation [None]
  - Impaired healing [None]
